FAERS Safety Report 9584475 (Version 1)
Quarter: 2013Q4

REPORT INFORMATION
  Report Type: Spontaneous
  Country: US (occurrence: US)
  Receive Date: 20131002
  Receipt Date: 20131002
  Transmission Date: 20140711
  Serious: No
  Sender: FDA-Public Use
  Company Number: US-AMGEN-USASP2013053300

PATIENT
  Age: 35 Year
  Sex: Female
  Weight: 81.63 kg

DRUGS (4)
  1. ENBREL [Suspect]
     Indication: PRODUCT USED FOR UNKNOWN INDICATION
     Dosage: 50 MG, QWK
     Route: 058
  2. PERCOCET                           /00446701/ [Concomitant]
     Dosage: 10-325 MG
  3. LEVOTHYROXIN [Concomitant]
     Dosage: 100 MUG, UNK
  4. CYMBALTA [Concomitant]
     Dosage: 20 MG, UNK

REACTIONS (3)
  - Injection site warmth [Unknown]
  - Injection site reaction [Unknown]
  - Injection site swelling [Unknown]
